FAERS Safety Report 4780065-8 (Version None)
Quarter: 2005Q3

REPORT INFORMATION
  Report Type: 
  Country: None (occurrence: None)
  Receive Date: 20050914
  Receipt Date: 20050309
  Transmission Date: 20060218
  Serious: Yes (Hospitalization)
  Sender: FDA-Public Use
  Company Number: 163-20785-04070282

PATIENT
  Age: 71 Year
  Sex: Male
  Weight: 105.6881 kg

DRUGS (10)
  1. THALOMID [Suspect]
     Indication: PROSTATE CANCER
     Dosage: 200 MG, AT BEDTIME, ORAL;  100 MG, AT BEDTIME, ORAL
     Route: 048
     Dates: start: 20030513, end: 20040429
  2. THALOMID [Suspect]
     Indication: PROSTATE CANCER
     Dosage: 200 MG, AT BEDTIME, ORAL;  100 MG, AT BEDTIME, ORAL
     Route: 048
     Dates: start: 20040510
  3. DECADRON [Suspect]
     Indication: PROSTATE CANCER
     Dosage: 0.75 MG, TWICE DAILY, ORAL;  0.75 MG, EVERY MORNING, ORAL
     Route: 048
     Dates: start: 20030513, end: 20040101
  4. DECADRON [Suspect]
     Indication: PROSTATE CANCER
     Dosage: 0.75 MG, TWICE DAILY, ORAL;  0.75 MG, EVERY MORNING, ORAL
     Route: 048
     Dates: start: 20040510
  5. LASIX [Concomitant]
  6. MICRO K (POTASSIUM CHLORIDE) [Concomitant]
  7. GLUCOTROL [Concomitant]
  8. ASPIRIN [Concomitant]
  9. COUMADIN [Concomitant]
  10. FERROUS SULFATE TAB [Concomitant]

REACTIONS (7)
  - DYSPNOEA [None]
  - GASTROENTERITIS RADIATION [None]
  - GASTROINTESTINAL HAEMORRHAGE [None]
  - HAEMOGLOBIN DECREASED [None]
  - HAEMORRHOIDS [None]
  - OCCULT BLOOD POSITIVE [None]
  - PULMONARY EMBOLISM [None]
